FAERS Safety Report 19125234 (Version 1)
Quarter: 2021Q2

REPORT INFORMATION
  Report Type: Report from Study
  Country: US (occurrence: US)
  Receive Date: 20210413
  Receipt Date: 20210413
  Transmission Date: 20210717
  Serious: Yes (Hospitalization, Other)
  Sender: FDA-Public Use
  Company Number: US-BAUSCH-BL-2021-012456

PATIENT
  Age: 79 Year
  Sex: Female

DRUGS (3)
  1. XIFAXAN [Suspect]
     Active Substance: RIFAXIMIN
     Indication: HEPATIC CIRRHOSIS
  2. XIFAXAN [Suspect]
     Active Substance: RIFAXIMIN
     Indication: HEPATIC ENCEPHALOPATHY
  3. XIFAXAN [Suspect]
     Active Substance: RIFAXIMIN
     Indication: NONALCOHOLIC FATTY LIVER DISEASE
     Dosage: STARTED IN FEB/2021 OR MAR/2021
     Route: 048
     Dates: start: 2021, end: 2021

REACTIONS (5)
  - Ill-defined disorder [Unknown]
  - Therapy interrupted [Unknown]
  - Dialysis [Unknown]
  - Confusional state [Unknown]
  - Inability to afford medication [Unknown]

NARRATIVE: CASE EVENT DATE: 2021
